FAERS Safety Report 25812979 (Version 1)
Quarter: 2025Q3

REPORT INFORMATION
  Report Type: Spontaneous
  Country: US (occurrence: US)
  Receive Date: 20250917
  Receipt Date: 20250917
  Transmission Date: 20251021
  Serious: No
  Sender: TEVA
  Company Number: US-TEVA-VS-3372449

PATIENT

DRUGS (1)
  1. UZEDY [Suspect]
     Active Substance: RISPERIDONE
     Indication: Product used for unknown indication
     Dosage: Q1M
     Route: 058
     Dates: start: 2025

REACTIONS (1)
  - Injection site pain [Unknown]

NARRATIVE: CASE EVENT DATE: 20250101
